FAERS Safety Report 4608898-9 (Version None)
Quarter: 2005Q1

REPORT INFORMATION
  Report Type: 
  Country: None (occurrence: None)
  Receive Date: 20050315
  Receipt Date: 20040914
  Transmission Date: 20050727
  Serious: Yes (Hospitalization)
  Sender: FDA-Public Use
  Company Number: PHRM2004FR02821

PATIENT
  Age: 69 Year
  Sex: Male

DRUGS (1)
  1. GLEEVEC [Suspect]
     Indication: CHRONIC MYELOID LEUKAEMIA
     Dosage: 400 MG DAILY
     Route: 048
     Dates: start: 20030515, end: 20040730

REACTIONS (7)
  - ECZEMA [None]
  - EOSINOPHILIC FASCIITIS [None]
  - HYPERSENSITIVITY [None]
  - LEUKAEMIA RECURRENT [None]
  - MYALGIA [None]
  - PSEUDO LYMPHOMA [None]
  - VASCULITIS [None]
